FAERS Safety Report 22924997 (Version 9)
Quarter: 2024Q4

REPORT INFORMATION
  Report Type: Spontaneous
  Country: JP (occurrence: JP)
  Receive Date: 20230908
  Receipt Date: 20241021
  Transmission Date: 20250114
  Serious: Yes (Hospitalization, Other)
  Sender: PFIZER
  Company Number: JP-ONO-2023JP022420

PATIENT
  Age: 64 Year
  Sex: Female
  Weight: 59.2 kg

DRUGS (20)
  1. BRAFTOVI [Suspect]
     Active Substance: ENCORAFENIB
     Indication: Colon cancer
     Dosage: 300 MG, EVERYDAY
     Route: 048
     Dates: start: 20230711, end: 20230725
  2. BRAFTOVI [Suspect]
     Active Substance: ENCORAFENIB
     Dosage: 300 MG, EVERYDAY
     Route: 048
     Dates: start: 20230808, end: 20231102
  3. MEKTOVI [Suspect]
     Active Substance: BINIMETINIB
     Indication: Colon cancer
     Dosage: 45 MG, Q12H
     Route: 048
     Dates: start: 20230711, end: 20230725
  4. OPDIVO [Suspect]
     Active Substance: NIVOLUMAB
     Indication: Colon cancer
     Dosage: 240 MG, Q3W
     Route: 041
     Dates: start: 20231128, end: 20240109
  5. OPDIVO [Suspect]
     Active Substance: NIVOLUMAB
     Dosage: UNK
     Route: 041
     Dates: start: 20240430
  6. YERVOY [Suspect]
     Active Substance: IPILIMUMAB
     Indication: Colon cancer
     Dosage: 57 MG, Q3W
     Route: 041
     Dates: start: 20231128, end: 20240109
  7. ERBITUX [Concomitant]
     Active Substance: CETUXIMAB
     Indication: Colon cancer
     Dosage: 600 MG
     Route: 041
     Dates: start: 20230711, end: 20230711
  8. ERBITUX [Concomitant]
     Active Substance: CETUXIMAB
     Dosage: 400 MG
     Route: 041
     Dates: end: 20230725
  9. ERBITUX [Concomitant]
     Active Substance: CETUXIMAB
     Dosage: 400 MG
     Route: 041
     Dates: start: 20230808, end: 20231102
  10. GLYCOSAMINOGLYCANS [Concomitant]
     Active Substance: GLYCOSAMINOGLYCANS
     Indication: Prophylaxis
     Dosage: UNK, Q12H
     Route: 061
     Dates: start: 20230711
  11. GLYCOSAMINOGLYCANS [Concomitant]
     Active Substance: GLYCOSAMINOGLYCANS
     Indication: Prophylaxis
     Dosage: UNK, Q12H (LOTION (EXCEPT LOTION FOR EYE))
     Route: 061
     Dates: start: 20230711
  12. LOCOID [Concomitant]
     Active Substance: HYDROCORTISONE BUTYRATE
     Indication: Prophylaxis
     Dosage: UNK, Q12H
     Route: 061
     Dates: start: 20230711
  13. BETAMETHASONE DIPROPIONATE [Concomitant]
     Active Substance: BETAMETHASONE DIPROPIONATE
     Indication: Prophylaxis
     Dosage: UNK, Q12H
     Route: 061
     Dates: start: 20230711
  14. MINOCYCLINE HYDROCHLORIDE [Concomitant]
     Active Substance: MINOCYCLINE HYDROCHLORIDE
     Indication: Prophylaxis
     Dosage: 100 MG, Q12H
     Route: 048
     Dates: start: 20230711
  15. CARBOHYDRATES\FATTY ACIDS\MINERALS\PROTEIN\VITAMINS [Concomitant]
     Active Substance: CARBOHYDRATES\FATTY ACIDS\MINERALS\PROTEIN\VITAMINS
     Dosage: 1 DF, Q12H
     Route: 065
  16. TRAMADOL [Concomitant]
     Active Substance: TRAMADOL
     Dosage: 25 MG, Q6H
     Route: 048
  17. HERBALS [Concomitant]
     Active Substance: HERBALS
     Dosage: 5 G, Q12H
     Route: 065
  18. LYRICA [Concomitant]
     Active Substance: PREGABALIN
     Dosage: 75 MG, EVERYDAY (TABLET, ORALLY DISINTEGRATING)
     Route: 048
  19. CELECOXIB [Concomitant]
     Active Substance: CELECOXIB
     Dosage: 100 MG, Q12H
     Route: 048
  20. REBAMIPIDE [Concomitant]
     Active Substance: REBAMIPIDE
     Dosage: 100 MG, Q12H
     Route: 048

REACTIONS (11)
  - Renal impairment [Recovered/Resolved]
  - Immune-mediated hepatitis [Recovered/Resolved]
  - Glomerular filtration rate decreased [Recovered/Resolved]
  - Proteinuria [Recovered/Resolved]
  - Blood creatinine increased [Recovered/Resolved]
  - Gallbladder polyp [Unknown]
  - Uterine leiomyoma [Unknown]
  - Pyrexia [Unknown]
  - Pain [Unknown]
  - Erythema [Unknown]
  - Dizziness [Recovering/Resolving]

NARRATIVE: CASE EVENT DATE: 20230718
